FAERS Safety Report 25149663 (Version 2)
Quarter: 2025Q3

REPORT INFORMATION
  Report Type: Report from Study
  Country: CA (occurrence: CA)
  Receive Date: 20250402
  Receipt Date: 20250918
  Transmission Date: 20251020
  Serious: Yes (Other)
  Sender: BIOCON
  Company Number: CA-MYLANLABS-2022M1083971

PATIENT

DRUGS (3)
  1. HULIO [Suspect]
     Active Substance: ADALIMUMAB-FKJP
     Indication: Crohn^s disease
     Route: 058
  2. HULIO [Suspect]
     Active Substance: ADALIMUMAB-FKJP
     Route: 065
  3. HULIO [Suspect]
     Active Substance: ADALIMUMAB-FKJP
     Dosage: 40 MILLIGRAM, Q2W (Q14 DAYS)
     Route: 058
     Dates: start: 20220811

REACTIONS (8)
  - Inflammatory bowel disease [Unknown]
  - Diverticulitis [Unknown]
  - Inflammation [Unknown]
  - Faecal calprotectin increased [Unknown]
  - Product use issue [Unknown]
  - Off label use [Unknown]
  - Product quality issue [Unknown]
  - Product leakage [Unknown]

NARRATIVE: CASE EVENT DATE: 20230223
